FAERS Safety Report 24323152 (Version 1)
Quarter: 2024Q3

REPORT INFORMATION
  Report Type: Spontaneous
  Country: RU (occurrence: None)
  Receive Date: 20240916
  Receipt Date: 20240916
  Transmission Date: 20241016
  Serious: Yes (Life-Threatening, Hospitalization, Other)
  Sender: ASTRAZENECA
  Company Number: 2024A208544

PATIENT
  Age: 63 Year
  Sex: Male

DRUGS (1)
  1. DAPAGLIFLOZIN [Suspect]
     Active Substance: DAPAGLIFLOZIN
     Indication: Cardiac failure
     Route: 048

REACTIONS (1)
  - Haematocrit increased [Recovered/Resolved]
